FAERS Safety Report 9004220 (Version 3)
Quarter: 2013Q2

REPORT INFORMATION
  Report Type: Spontaneous
  Country: US (occurrence: US)
  Receive Date: 20130109
  Receipt Date: 20130408
  Transmission Date: 20140414
  Serious: No
  Sender: FDA-Public Use
  Company Number: US-BIOGENIDEC-2013BI001427

PATIENT
  Sex: Female

DRUGS (13)
  1. TYSABRI [Suspect]
     Indication: MULTIPLE SCLEROSIS
     Route: 042
     Dates: start: 20101012
  2. AVONEX [Concomitant]
     Indication: MULTIPLE SCLEROSIS
     Route: 030
     Dates: start: 20010313
  3. HYDROXYZINE [Concomitant]
     Route: 048
     Dates: end: 20121108
  4. METHYLPREDNISOLONE [Concomitant]
     Route: 042
     Dates: start: 20121007, end: 20121108
  5. METHYLPREDNISOLONE [Concomitant]
     Route: 042
     Dates: start: 20121007
  6. HIDROCODONE-ACETAMINOPHEN [Concomitant]
     Route: 048
  7. PRAMIPEXOLE [Concomitant]
     Route: 048
  8. CHOLECALCIFEROL [Concomitant]
     Route: 048
  9. CALCIUM [Concomitant]
     Route: 048
  10. DIPHENHYDRAMINE [Concomitant]
     Indication: HYPERSENSITIVITY
     Route: 042
     Dates: start: 20121010
  11. ALPRAZOLAM [Concomitant]
     Route: 048
  12. CYCLOBEZAPRINE [Concomitant]
     Route: 048
  13. STEROIDS [Concomitant]
     Route: 042

REACTIONS (22)
  - Stress [Unknown]
  - Mood swings [Unknown]
  - Urinary incontinence [Unknown]
  - Faecal incontinence [Unknown]
  - General symptom [Unknown]
  - Muscular weakness [Unknown]
  - Hypoaesthesia [Unknown]
  - Sensation of heaviness [Unknown]
  - Excessive skin [Unknown]
  - Weight decreased [Unknown]
  - Joint hyperextension [Not Recovered/Not Resolved]
  - Depressed mood [Unknown]
  - Muscle tightness [Unknown]
  - Sleep disorder [Not Recovered/Not Resolved]
  - Pain in extremity [Unknown]
  - Clonus [Unknown]
  - Drug ineffective [Not Recovered/Not Resolved]
  - Multiple sclerosis relapse [Unknown]
  - Arthralgia [Not Recovered/Not Resolved]
  - Fatigue [Not Recovered/Not Resolved]
  - Anxiety [Not Recovered/Not Resolved]
  - Multiple sclerosis [Not Recovered/Not Resolved]
